FAERS Safety Report 9047311 (Version 2)
Quarter: 2013Q1

REPORT INFORMATION
  Report Type: Report from Study
  Country: US (occurrence: US)
  Receive Date: 20130131
  Receipt Date: 20130211
  Transmission Date: 20140127
  Serious: Yes (Hospitalization, Other)
  Sender: FDA-Public Use
  Company Number: US-ABBOTT-12P-163-0976878-00

PATIENT
  Age: 58 None
  Sex: Female
  Weight: 81.27 kg

DRUGS (9)
  1. HUMIRA [Suspect]
     Indication: RHEUMATOID ARTHRITIS
     Dates: start: 201202, end: 201203
  2. HUMIRA [Suspect]
     Dates: start: 201208
  3. ALLOPURINOL [Concomitant]
     Indication: GOUT
  4. METHOTREXATE [Concomitant]
     Indication: RHEUMATOID ARTHRITIS
  5. FOLIC ACID [Concomitant]
     Indication: PRODUCT USED FOR UNKNOWN INDICATION
  6. NORVASC [Concomitant]
     Indication: HYPERTENSION
  7. LISINOPRIL [Concomitant]
     Indication: HYPERTENSION
  8. PREVASTATIN SODIUM [Concomitant]
     Indication: BLOOD CHOLESTEROL INCREASED
  9. VIT D [Concomitant]
     Indication: VITAMIN D DECREASED

REACTIONS (3)
  - Osteoarthritis [Unknown]
  - Arthritis [Recovered/Resolved]
  - Arthralgia [Not Recovered/Not Resolved]
